FAERS Safety Report 10006621 (Version 1)
Quarter: 2014Q1

REPORT INFORMATION
  Report Type: Spontaneous
  Country: US (occurrence: US)
  Receive Date: 20140313
  Receipt Date: 20140313
  Transmission Date: 20141002
  Serious: No
  Sender: FDA-Public Use
  Company Number: US-PFIZER INC-2014071156

PATIENT
  Age: 78 Year
  Sex: Female

DRUGS (5)
  1. MEDROL [Suspect]
     Dosage: UNK
  2. NORVASC [Suspect]
     Dosage: UNK
  3. DIOVAN (VALSARTAN) [Suspect]
     Dosage: UNK
  4. PEPCID AC [Suspect]
     Dosage: UNK
  5. BENADRYL [Suspect]
     Dosage: UNK

REACTIONS (1)
  - Drug hypersensitivity [Unknown]
